FAERS Safety Report 9943678 (Version 2)
Quarter: 2014Q1

REPORT INFORMATION
  Report Type: Report from Study
  Country: US (occurrence: US)
  Receive Date: 20140303
  Receipt Date: 20140303
  Transmission Date: 20141002
  Serious: No
  Sender: FDA-Public Use
  Company Number: US-ABBVIE-12P-163-0966328-00

PATIENT
  Age: 50 Year
  Sex: Female

DRUGS (20)
  1. NAPROSYN [Concomitant]
     Indication: PRODUCT USED FOR UNKNOWN INDICATION
  2. IBUPROFEN [Concomitant]
     Indication: PRODUCT USED FOR UNKNOWN INDICATION
  3. HUMIRA [Suspect]
     Indication: PSORIASIS
     Route: 058
     Dates: start: 20120605, end: 201212
  4. OXYCONTIN [Concomitant]
     Indication: PAIN
  5. OXYCODONE [Concomitant]
     Indication: PAIN
     Dosage: 1-3 TABLETS PER DAY
  6. XANAX [Concomitant]
     Indication: PRODUCT USED FOR UNKNOWN INDICATION
     Dosage: UP TO 4MG PER DAY
  7. PRISTIQ [Concomitant]
     Indication: ANXIETY
     Dosage: 50MG DAILY
  8. PRISTIQ [Concomitant]
     Indication: DEPRESSION
  9. LASIX [Concomitant]
     Indication: PRODUCT USED FOR UNKNOWN INDICATION
     Dates: end: 20130102
  10. LASIX [Concomitant]
     Dates: start: 20130202
  11. KLOR-CON [Concomitant]
     Indication: PRODUCT USED FOR UNKNOWN INDICATION
     Dosage: 20MEQ DAILY
  12. SEROQUEL XR [Concomitant]
     Indication: DEPRESSION
     Dosage: AT BEDTIME
  13. SEROQUEL XR [Concomitant]
     Indication: INSOMNIA
  14. FLEXERIL [Concomitant]
     Indication: PRODUCT USED FOR UNKNOWN INDICATION
     Dosage: AT BEDTIME
  15. PRILOSEC [Concomitant]
     Indication: GASTROOESOPHAGEAL REFLUX DISEASE
     Dosage: 40MG DAILY
  16. PRILOSEC [Concomitant]
     Indication: GASTROINTESTINAL DISORDER
  17. PRILOSEC [Concomitant]
     Indication: GASTRIC BYPASS
  18. BENADRYL [Concomitant]
     Indication: HYPERSENSITIVITY
     Dosage: 2 IN 1 D, AS REQUIRED
  19. PHENERGAN [Concomitant]
     Indication: NAUSEA
  20. TYLENOL EXTRA STRENGTH [Concomitant]
     Indication: PRODUCT USED FOR UNKNOWN INDICATION

REACTIONS (22)
  - Feeling abnormal [Not Recovered/Not Resolved]
  - Musculoskeletal stiffness [Not Recovered/Not Resolved]
  - Joint swelling [Not Recovered/Not Resolved]
  - Malaise [Not Recovered/Not Resolved]
  - Malaise [Not Recovered/Not Resolved]
  - Nausea [Not Recovered/Not Resolved]
  - Vomiting [Not Recovered/Not Resolved]
  - Weight decreased [Not Recovered/Not Resolved]
  - Dry mouth [Not Recovered/Not Resolved]
  - Bowel movement irregularity [Not Recovered/Not Resolved]
  - Gastric disorder [Not Recovered/Not Resolved]
  - Gastrointestinal disorder [Not Recovered/Not Resolved]
  - Constipation [Not Recovered/Not Resolved]
  - Vaginal disorder [Not Recovered/Not Resolved]
  - Vaginal disorder [Not Recovered/Not Resolved]
  - Faecaloma [Not Recovered/Not Resolved]
  - Dehydration [Not Recovered/Not Resolved]
  - Rash [Not Recovered/Not Resolved]
  - Skin haemorrhage [Not Recovered/Not Resolved]
  - Scab [Not Recovered/Not Resolved]
  - Psoriasis [Not Recovered/Not Resolved]
  - Lichen sclerosus [Not Recovered/Not Resolved]
